FAERS Safety Report 24606862 (Version 1)
Quarter: 2024Q4

REPORT INFORMATION
  Report Type: Report from Study
  Country: US (occurrence: US)
  Receive Date: 20241112
  Receipt Date: 20241112
  Transmission Date: 20250115
  Serious: Yes (Other)
  Sender: ASTELLAS
  Company Number: US-ASTELLAS-2024-AER-016275

PATIENT
  Age: 8 Year
  Sex: Male

DRUGS (7)
  1. TACROLIMUS [Suspect]
     Active Substance: TACROLIMUS
     Indication: Intestinal transplant
     Dosage: MAINTAINED ON 10-12 ?G/ML, CONTINUED IMMUNOSUPPRESSION WITH TACROLIMUS (GOAL 8^-10?G/ML
     Route: 065
  2. RITUXIMAB [Concomitant]
     Active Substance: RITUXIMAB
     Indication: Intestinal transplant
     Dosage: 500 MG/M2
     Route: 065
  3. LAPINE T-LYMPHOCYTE IMMUNE GLOBULIN [Concomitant]
     Active Substance: LAPINE T-LYMPHOCYTE IMMUNE GLOBULIN
     Indication: Intestinal transplant
     Dosage: (7 MG/KG)
     Route: 065
  4. SIROLIMUS [Concomitant]
     Active Substance: SIROLIMUS
     Indication: Intestinal transplant
     Dosage: MAINTAINED ON SIROLIMUS, AFTERWARDS (GOAL 2-4 NG/ML)
     Route: 065
  5. SIROLIMUS [Concomitant]
     Active Substance: SIROLIMUS
     Dosage: RESTARTED
     Route: 065
  6. PREDNISONE [Concomitant]
     Active Substance: PREDNISONE
     Indication: Intestinal transplant
     Dosage: LOW DOSE
     Route: 065
  7. PREDNISONE [Concomitant]
     Active Substance: PREDNISONE
     Route: 065

REACTIONS (5)
  - Enterocolitis viral [Unknown]
  - Rotavirus infection [Unknown]
  - Cytomegalovirus enterocolitis [Recovered/Resolved]
  - Apoptosis [Unknown]
  - Off label use [Unknown]
